FAERS Safety Report 16606778 (Version 3)
Quarter: 2019Q4

REPORT INFORMATION
  Report Type: Spontaneous
  Country: JP (occurrence: JP)
  Receive Date: 20190722
  Receipt Date: 20191007
  Transmission Date: 20200122
  Serious: Yes (Death, Other)
  Sender: FDA-Public Use
  Company Number: JP-SA-2019SA189147

PATIENT
  Age: 77 Year
  Sex: Female
  Weight: 38.1 kg

DRUGS (12)
  1. ELPLAT [Suspect]
     Active Substance: OXALIPLATIN
     Dosage: 140 MG, Q3W
     Route: 041
     Dates: start: 20190507, end: 20190507
  2. ALOXI [Concomitant]
     Active Substance: PALONOSETRON HYDROCHLORIDE
     Dosage: UNK
     Dates: start: 20190225, end: 20190529
  3. TS-1 [Concomitant]
     Active Substance: GIMERACIL\OTERACIL\TEGAFUR
     Indication: GASTRIC CANCER
     Dosage: UNK UNK, UNK
     Route: 065
     Dates: start: 20190225, end: 20190611
  4. AMLODIPINE BESILATE [Concomitant]
     Active Substance: AMLODIPINE BESYLATE
     Dosage: UNK
     Route: 048
     Dates: start: 20190108
  5. ELPLAT [Suspect]
     Active Substance: OXALIPLATIN
     Indication: GASTRIC CANCER
     Dosage: 140 MG, Q3W
     Route: 041
     Dates: start: 20190225, end: 20190225
  6. ZETIA [Concomitant]
     Active Substance: EZETIMIBE
     Dosage: UNK
     Dates: start: 20190108
  7. ELPLAT [Suspect]
     Active Substance: OXALIPLATIN
     Dosage: 140 MG, Q3W
     Route: 041
     Dates: start: 20190529, end: 20190529
  8. DEXART [Concomitant]
     Active Substance: DEXAMETHASONE SODIUM PHOSPHATE
     Dosage: UNK
     Dates: start: 20190225, end: 20190529
  9. EMEND [Concomitant]
     Active Substance: APREPITANT
     Dosage: UNK
     Dates: start: 20190225, end: 20190531
  10. TERPERAN [Concomitant]
     Active Substance: METOCLOPRAMIDE HYDROCHLORIDE
     Dosage: UNK
     Dates: start: 20190225, end: 20190529
  11. CALONAL [Concomitant]
     Active Substance: ACETAMINOPHEN
     Dosage: UNK
     Route: 048
     Dates: start: 20190225, end: 20190525
  12. TERPERAN [Concomitant]
     Active Substance: METOCLOPRAMIDE HYDROCHLORIDE
     Dosage: UNK
     Dates: start: 20190108

REACTIONS (1)
  - Lung abscess [Fatal]

NARRATIVE: CASE EVENT DATE: 20190613
